FAERS Safety Report 6404320-0 (Version None)
Quarter: 2009Q4

REPORT INFORMATION
  Report Type: 
  Country: None (occurrence: None)
  Receive Date: 20091016
  Receipt Date: 20091015
  Transmission Date: 20100525
  Serious: Yes (Death, Hospitalization)
  Sender: FDA-Public Use
  Company Number: A0810417A

PATIENT
  Age: 30 Year
  Sex: Female
  Weight: 99.1 kg

DRUGS (2)
  1. ZANAMIVIR [Suspect]
     Dosage: 250MG TWICE PER DAY
     Route: 042
     Dates: start: 20090905, end: 20090914
  2. ZANAMIVIR [Concomitant]
     Dosage: 15MG TWICE PER DAY
     Route: 055
     Dates: start: 20090903, end: 20090904

REACTIONS (7)
  - ACUTE RESPIRATORY DISTRESS SYNDROME [None]
  - CARDIO-RESPIRATORY ARREST [None]
  - CHORIOAMNIONITIS [None]
  - DRUG EXPOSURE DURING PREGNANCY [None]
  - PREMATURE RUPTURE OF MEMBRANES [None]
  - RESPIRATORY FAILURE [None]
  - SEPSIS SYNDROME [None]
